FAERS Safety Report 21083546 (Version 1)
Quarter: 2022Q3

REPORT INFORMATION
  Report Type: Spontaneous
  Country: JP (occurrence: JP)
  Receive Date: 20220714
  Receipt Date: 20220714
  Transmission Date: 20221026
  Serious: No
  Sender: FDA-Public Use
  Company Number: JP-ALLERGAN-2222278US

PATIENT
  Age: 69 Year
  Sex: Male

DRUGS (6)
  1. ASENAPINE MALEATE [Suspect]
     Active Substance: ASENAPINE MALEATE
     Indication: Prophylaxis of nausea and vomiting
     Dosage: 5 MG, QD
     Route: 060
     Dates: start: 20220630, end: 20220703
  2. PALONOSETRON HYDROCHLORIDE [Concomitant]
     Active Substance: PALONOSETRON HYDROCHLORIDE
     Dosage: UNK
     Dates: start: 20210630, end: 20210630
  3. APREPITANT [Concomitant]
     Active Substance: APREPITANT
     Dosage: UNK
     Dates: start: 20210630, end: 20210702
  4. DEXAMETHASONE [Concomitant]
     Active Substance: DEXAMETHASONE
     Dosage: UNK
     Dates: start: 20210630, end: 20210703
  5. FLUOROURACIL [Concomitant]
     Active Substance: FLUOROURACIL
     Indication: Chemotherapy
  6. CISPLATIN [Concomitant]
     Active Substance: CISPLATIN
     Dosage: 70 MILLIGRAM/SQUARE METER
     Dates: start: 20210630

REACTIONS (3)
  - Hiccups [Recovered/Resolved]
  - Hyperglycaemia [Not Recovered/Not Resolved]
  - Rash [Recovered/Resolved]

NARRATIVE: CASE EVENT DATE: 20210630
